FAERS Safety Report 15059345 (Version 1)
Quarter: 2018Q2

REPORT INFORMATION
  Report Type: Report from Study
  Country: BR (occurrence: BR)
  Receive Date: 20180625
  Receipt Date: 20180625
  Transmission Date: 20180711
  Serious: Yes (Hospitalization, Other)
  Sender: FDA-Public Use
  Company Number: BR-JNJFOC-20180622546

PATIENT
  Sex: Male

DRUGS (1)
  1. STELARA [Suspect]
     Active Substance: USTEKINUMAB
     Indication: PEMPHIGUS
     Route: 058

REACTIONS (4)
  - Skin infection [Unknown]
  - Product use in unapproved indication [Unknown]
  - Infection [Unknown]
  - Off label use [Unknown]
